FAERS Safety Report 9593270 (Version 1)
Quarter: 2013Q4

REPORT INFORMATION
  Report Type: Spontaneous
  Country: US (occurrence: None)
  Receive Date: 20131002
  Receipt Date: 20131002
  Transmission Date: 20140711
  Serious: Yes (Other)
  Sender: FDA-Public Use
  Company Number: A1042593A

PATIENT
  Age: 24 Year
  Sex: Male

DRUGS (1)
  1. SODIUM FLUORIDE + POTASSIUM NITRATE TOOTHPASTE TUBE [Suspect]
     Indication: SENSITIVITY OF TEETH
     Dates: start: 20130902, end: 20130916

REACTIONS (3)
  - VIIth nerve paralysis [None]
  - Ageusia [None]
  - Dysphagia [None]
